FAERS Safety Report 18949231 (Version 1)
Quarter: 2021Q1

REPORT INFORMATION
  Report Type: Spontaneous
  Country: US (occurrence: US)
  Receive Date: 20210227
  Receipt Date: 20210227
  Transmission Date: 20210420
  Serious: No
  Sender: FDA-Public Use
  Company Number: US-ROCHE-2657949

PATIENT
  Sex: Male

DRUGS (4)
  1. XOLAIR [Suspect]
     Active Substance: OMALIZUMAB
     Indication: CHRONIC SPONTANEOUS URTICARIA
     Route: 058
  2. XOLAIR [Suspect]
     Active Substance: OMALIZUMAB
     Route: 058
  3. HYDROXYZINE [Concomitant]
     Active Substance: HYDROXYZINE HYDROCHLORIDE
  4. CYPROHEPTADINE. [Concomitant]
     Active Substance: CYPROHEPTADINE

REACTIONS (5)
  - Headache [Not Recovered/Not Resolved]
  - Blood pressure abnormal [Unknown]
  - Chest pain [Unknown]
  - Heart rate increased [Unknown]
  - Dyspnoea [Unknown]
